FAERS Safety Report 10090683 (Version 1)
Quarter: 2014Q2

REPORT INFORMATION
  Report Type: Spontaneous
  Country: US (occurrence: None)
  Receive Date: 20140417
  Receipt Date: 20140417
  Transmission Date: 20141212
  Serious: Yes (Hospitalization)
  Sender: FDA-Public Use
  Company Number: 2014AP002630

PATIENT
  Age: 25 Year
  Sex: Male

DRUGS (5)
  1. NEVIRAPINE [Suspect]
     Indication: HIV INFECTION
     Dates: start: 200704
  2. LAMIVUDINE [Suspect]
  3. STAVUDINE [Suspect]
     Indication: HIV INFECTION
     Dates: start: 200704
  4. TENOFOVIR (TENOFOVIR) UNKNOWN [Suspect]
     Dates: start: 201009
  5. LOPINAVIR W/RITONAVIR [Suspect]
     Indication: HIV INFECTION
     Dates: start: 201009

REACTIONS (3)
  - Molluscum contagiosum [None]
  - Bacterial infection [None]
  - Immune reconstitution inflammatory syndrome [None]
